FAERS Safety Report 19953867 (Version 1)
Quarter: 2021Q4

REPORT INFORMATION
  Report Type: Report from Study
  Country: US (occurrence: US)
  Receive Date: 20211014
  Receipt Date: 20211014
  Transmission Date: 20220303
  Serious: Yes (Hospitalization, Other)
  Sender: FDA-Public Use
  Company Number: US-AUROBINDO-AUR-APL-2021-042525

PATIENT
  Sex: Female
  Weight: 86.18 kg

DRUGS (8)
  1. METFORMIN [Suspect]
     Active Substance: METFORMIN HYDROCHLORIDE
     Indication: Assisted fertilisation
     Dosage: BEFORE LMP-12 WEEKS PREGNANT
     Route: 065
  2. PROGESTERONE [Suspect]
     Active Substance: PROGESTERONE
     Indication: Assisted fertilisation
     Dosage: BEFORE LMP-10 WEEKS PREGNANT
     Route: 065
  3. ABILIFY [Suspect]
     Active Substance: ARIPIPRAZOLE
     Indication: Borderline personality disorder
     Dosage: BEFORE LMP-5 WEEKS PREGNANT, 7 WEEKS-DELIVERY
     Route: 065
  4. PRISTIQ EXTENDED-RELEASE [Suspect]
     Active Substance: DESVENLAFAXINE SUCCINATE
     Indication: Depression
     Dosage: BEFORE LMP-DELIVERY
     Route: 065
  5. LEVOTHYROXINE [Suspect]
     Active Substance: LEVOTHYROXINE
     Indication: Hypothyroidism
     Dosage: BEFORE LMP-DELIVERY
     Route: 065
  6. ATIVAN [Suspect]
     Active Substance: LORAZEPAM
     Indication: Anxiety
     Dosage: BEFORE LMP-DELIVERY
     Route: 065
  7. ESTROGENS [Suspect]
     Active Substance: ESTROGENS
     Indication: Assisted fertilisation
     Dosage: BEFORE LMP-UNKNOWN
     Route: 065
  8. INSULIN NOS [Suspect]
     Active Substance: INSULIN NOS
     Indication: Gestational diabetes
     Dosage: 32 WEEKS PREGNANT-DELIVERY
     Route: 065

REACTIONS (6)
  - Gestational diabetes [Unknown]
  - Pre-eclampsia [Unknown]
  - Proteinuria [Unknown]
  - Umbilical cord around neck [Unknown]
  - Exposure during pregnancy [Unknown]
  - Product use in unapproved indication [Unknown]

NARRATIVE: CASE EVENT DATE: 20200531
